FAERS Safety Report 16698063 (Version 2)
Quarter: 2019Q3

REPORT INFORMATION
  Report Type: Spontaneous
  Country: CO (occurrence: CO)
  Receive Date: 20190813
  Receipt Date: 20190829
  Transmission Date: 20191004
  Serious: Yes (Other)
  Sender: FDA-Public Use
  Company Number: CO-ROCHE-2368273

PATIENT
  Sex: Female

DRUGS (11)
  1. HERCEPTIN [Suspect]
     Active Substance: TRASTUZUMAB
     Indication: HER-2 POSITIVE BREAST CANCER
     Route: 058
     Dates: start: 20171019, end: 20181018
  2. PERJETA [Concomitant]
     Active Substance: PERTUZUMAB
     Indication: BREAST CANCER
     Dosage: INITIAL DOSE
     Route: 065
     Dates: start: 20190427
  3. KADCYLA [Suspect]
     Active Substance: ADO-TRASTUZUMAB EMTANSINE
     Indication: HER-2 POSITIVE BREAST CANCER
     Dosage: INITIAL DOSE
     Route: 065
     Dates: start: 20190401, end: 20190424
  4. HERCEPTIN [Concomitant]
     Active Substance: TRASTUZUMAB
     Indication: BREAST CANCER
     Route: 042
     Dates: start: 20190427
  5. DOCETAXEL. [Concomitant]
     Active Substance: DOCETAXEL
  6. XELODA [Suspect]
     Active Substance: CAPECITABINE
     Indication: HER-2 POSITIVE BREAST CANCER
     Route: 048
     Dates: start: 20190201, end: 20190322
  7. PACLITAXEL. [Concomitant]
     Active Substance: PACLITAXEL
  8. CARBOPLATIN. [Concomitant]
     Active Substance: CARBOPLATIN
  9. CYCLOPHOSPHAMIDE. [Concomitant]
     Active Substance: CYCLOPHOSPHAMIDE
  10. LAPATINIB [Concomitant]
     Active Substance: LAPATINIB
  11. DOXORUBICIN [Concomitant]
     Active Substance: DOXORUBICIN

REACTIONS (20)
  - Metastases to pleura [Recovering/Resolving]
  - Gastrointestinal disorder [Recovering/Resolving]
  - Hypersensitivity [Recovered/Resolved]
  - Neoplasm progression [Recovered/Resolved]
  - Erythema [Recovered/Resolved]
  - Nodule [Recovering/Resolving]
  - Skin ulcer [Recovered/Resolved]
  - Adenocarcinoma [Recovering/Resolving]
  - Tumour embolism [Recovering/Resolving]
  - Breast oedema [Recovered/Resolved]
  - Inflammation [Recovered/Resolved]
  - Ill-defined disorder [Recovered/Resolved]
  - Skin texture abnormal [Recovered/Resolved]
  - Neoplasm malignant [Recovering/Resolving]
  - Metastasis [Recovering/Resolving]
  - Breast inflammation [Recovering/Resolving]
  - Skin wound [Recovered/Resolved]
  - Pain [Recovered/Resolved]
  - Skin mass [Recovering/Resolving]
  - Metastases to peritoneum [Recovering/Resolving]
